FAERS Safety Report 4475210-8 (Version None)
Quarter: 2004Q3

REPORT INFORMATION
  Report Type: 
  Country: None (occurrence: None)
  Receive Date: 20040923
  Receipt Date: 20040624
  Transmission Date: 20050211
  Serious: No
  Sender: FDA-Public Use
  Company Number: USA040671004

PATIENT
  Age: 74 Year
  Sex: Female
  Weight: 53 kg

DRUGS (5)
  1. FORTEO [Suspect]
     Indication: OSTEOPOROSIS
     Dosage: 20 UG DAY
     Dates: start: 20031001
  2. PRDNISONE [Concomitant]
  3. CALCIUM [Concomitant]
  4. MAGNESIUM (MAGNESIUM ASPARTATE) [Concomitant]
  5. PREMARIN [Concomitant]

REACTIONS (1)
  - PRURITUS GENERALISED [None]
